FAERS Safety Report 6600427-3 (Version None)
Quarter: 2010Q1

REPORT INFORMATION
  Report Type: 
  Country: None (occurrence: None)
  Receive Date: 20100223
  Receipt Date: 20100223
  Transmission Date: 20100710
  Serious: Yes (Other)
  Sender: FDA-Public Use
  Company Number: None

PATIENT
  Sex: Female
  Weight: 47.7 kg

DRUGS (1)
  1. TIOCONAZOLE [Suspect]
     Indication: VULVOVAGINAL MYCOTIC INFECTION
     Dosage: TIOCONAZOLE 300MG ONCE VAGINAL (EVENING)
     Route: 067
     Dates: start: 20100210

REACTIONS (3)
  - VULVOVAGINAL DISCOMFORT [None]
  - VULVOVAGINAL ERYTHEMA [None]
  - VULVOVAGINAL PAIN [None]
